FAERS Safety Report 18092285 (Version 1)
Quarter: 2020Q3

REPORT INFORMATION
  Report Type: Spontaneous
  Country: US (occurrence: US)
  Receive Date: 20200730
  Receipt Date: 20200730
  Transmission Date: 20201103
  Serious: No
  Sender: FDA-Public Use
  Company Number: None

PATIENT
  Sex: Male

DRUGS (1)
  1. BACTRIM DS [Suspect]
     Active Substance: SULFAMETHOXAZOLE\TRIMETHOPRIM
     Indication: PROSTATITIS
     Route: 048
     Dates: start: 20200424, end: 20200426

REACTIONS (3)
  - Rash [None]
  - Therapy cessation [None]
  - Rash pruritic [None]

NARRATIVE: CASE EVENT DATE: 20200424
